FAERS Safety Report 14511505 (Version 4)
Quarter: 2022Q1

REPORT INFORMATION
  Report Type: Spontaneous
  Country: FR (occurrence: FR)
  Receive Date: 20180209
  Receipt Date: 20220322
  Transmission Date: 20220423
  Serious: Yes (Hospitalization, Congenital Anomaly, Other)
  Sender: FDA-Public Use
  Company Number: FR-ABBVIE-18P-056-2247495-00

PATIENT
  Sex: Female

DRUGS (1)
  1. VALPROATE SODIUM [Suspect]
     Active Substance: VALPROATE SODIUM
     Indication: Maternal exposure timing unspecified
     Route: 064

REACTIONS (24)
  - Lymphadenitis [Unknown]
  - Foetal anticonvulsant syndrome [Unknown]
  - Ear infection [Unknown]
  - Scoliosis [Unknown]
  - Heterophoria [Unknown]
  - Prognathism [Unknown]
  - Joint laxity [Unknown]
  - Spinal pain [Unknown]
  - Foetal growth restriction [Unknown]
  - Spine malformation [Unknown]
  - Dysmorphism [Unknown]
  - Knee deformity [Unknown]
  - Enuresis [Unknown]
  - Constipation [Unknown]
  - Appendicitis [Unknown]
  - Adenoma benign [Unknown]
  - Syndactyly [Unknown]
  - Pectus excavatum [Unknown]
  - Prognathism [Unknown]
  - Mental impairment [Unknown]
  - Speech disorder [Unknown]
  - Joint hyperextension [Unknown]
  - Finger deformity [Unknown]
  - Foetal exposure during pregnancy [Unknown]
